FAERS Safety Report 20304680 (Version 5)
Quarter: 2022Q1

REPORT INFORMATION
  Report Type: Spontaneous
  Country: US (occurrence: US)
  Receive Date: 20220106
  Receipt Date: 20220106
  Transmission Date: 20220423
  Serious: Yes (Other)
  Sender: FDA-Public Use
  Company Number: US-SPECGX-T202104282

PATIENT
  Sex: Male

DRUGS (3)
  1. OXYCODONE [Suspect]
     Active Substance: OXYCODONE
     Indication: Pain
     Dosage: 15 MILLIGRAM, PRN (ONCE A DAY)
     Route: 048
  2. CARVEDILOL [Suspect]
     Active Substance: CARVEDILOL
     Indication: Hypertension
     Dosage: UNK
     Route: 065
  3. TIROSINT [Concomitant]
     Active Substance: LEVOTHYROXINE SODIUM
     Indication: Hypothyroidism
     Dosage: UNK
     Route: 065

REACTIONS (6)
  - Paralysis [Unknown]
  - Aphasia [Unknown]
  - Hypertension [Unknown]
  - Agitation [Not Recovered/Not Resolved]
  - Constipation [Unknown]
  - Drug ineffective [Unknown]

NARRATIVE: CASE EVENT DATE: 20211221
